FAERS Safety Report 21601456 (Version 2)
Quarter: 2022Q4

REPORT INFORMATION
  Report Type: Report from Study
  Country: IT (occurrence: None)
  Receive Date: 20221116
  Receipt Date: 20221212
  Transmission Date: 20230113
  Serious: Yes (Hospitalization)
  Sender: FDA-Public Use
  Company Number: IT-ROCHE-3218282

PATIENT
  Age: 70 Year
  Sex: Female
  Weight: 60 kg

DRUGS (2)
  1. ATEZOLIZUMAB [Suspect]
     Active Substance: ATEZOLIZUMAB
     Indication: Non-small cell lung cancer metastatic
     Dosage: CYCLE 1, ON 27/OCT/2022, SHE RECEIVED LAST DOSE OF ATEZOLIZUMAB PRIOR TO ADVERSE EVENT.
     Route: 065
     Dates: start: 20221006
  2. BEVACIZUMAB [Suspect]
     Active Substance: BEVACIZUMAB
     Indication: Non-small cell lung cancer metastatic
     Dosage: CYCLE 1, ON 27/OCT/2022, HE RECEIVED LAST DOSE OF BEVACIZUMAB PRIOR TO ADVERSE EVENT.
     Route: 065
     Dates: start: 20221006

REACTIONS (4)
  - Asthenia [Not Recovered/Not Resolved]
  - Diarrhoea [Not Recovered/Not Resolved]
  - Depression [Not Recovered/Not Resolved]
  - Anaemia [Not Recovered/Not Resolved]

NARRATIVE: CASE EVENT DATE: 20221110
